FAERS Safety Report 19420601 (Version 1)
Quarter: 2021Q2

REPORT INFORMATION
  Report Type: Spontaneous
  Country: US (occurrence: US)
  Receive Date: 20210616
  Receipt Date: 20210616
  Transmission Date: 20210717
  Serious: No
  Sender: FDA-Public Use
  Company Number: US-BLUEPRINT MEDICINES CORPORATION-SP-US-2021-000830

PATIENT
  Sex: Male

DRUGS (1)
  1. AYVAKIT [Suspect]
     Active Substance: AVAPRITINIB
     Indication: GASTROINTESTINAL STROMAL TUMOUR
     Route: 048
     Dates: start: 20210428

REACTIONS (5)
  - Red cell distribution width increased [Unknown]
  - Abnormal dreams [Unknown]
  - Blood glucose increased [Unknown]
  - Blood pressure increased [Unknown]
  - Skin exfoliation [Unknown]
